FAERS Safety Report 18463172 (Version 2)
Quarter: 2020Q4

REPORT INFORMATION
  Report Type: Spontaneous
  Country: CN (occurrence: CN)
  Receive Date: 20201104
  Receipt Date: 20201106
  Transmission Date: 20210114
  Serious: Yes (Death, Other)
  Sender: FDA-Public Use
  Company Number: CN-ASTRAZENECA-2020SF42646

PATIENT
  Age: 85 Year
  Sex: Male

DRUGS (1)
  1. IRESSA [Suspect]
     Active Substance: GEFITINIB
     Indication: NON-SMALL CELL LUNG CANCER
     Route: 048

REACTIONS (6)
  - Dyspnoea [Unknown]
  - Death [Fatal]
  - Hyperpyrexia [Not Recovered/Not Resolved]
  - Cardiac arrest [Unknown]
  - Suffocation feeling [Unknown]
  - Pneumonia [Not Recovered/Not Resolved]
